FAERS Safety Report 4292185-5 (Version None)
Quarter: 2004Q1

REPORT INFORMATION
  Report Type: 
  Country: None (occurrence: None)
  Receive Date: 20040126
  Receipt Date: 20031119
  Transmission Date: 20041129
  Serious: No
  Sender: FDA-Public Use
  Company Number: USA030741979

PATIENT
  Age: 55 Year
  Sex: Female
  Weight: 80 kg

DRUGS (2)
  1. FORTEO [Suspect]
     Indication: OSTEOPOROSIS
     Dosage: 20UG/DAY
     Dates: start: 20030710
  2. CALCIUM [Concomitant]

REACTIONS (7)
  - DYSPNOEA [None]
  - FEELING ABNORMAL [None]
  - INFLUENZA [None]
  - INJECTION SITE ERYTHEMA [None]
  - INJECTION SITE PAIN [None]
  - MUSCULOSKELETAL STIFFNESS [None]
  - SENSORY DISTURBANCE [None]
